FAERS Safety Report 9605464 (Version 1)
Quarter: 2013Q4

REPORT INFORMATION
  Report Type: Spontaneous
  Country: ES (occurrence: ES)
  Receive Date: 20131008
  Receipt Date: 20131008
  Transmission Date: 20140711
  Serious: Yes (Other)
  Sender: FDA-Public Use
  Company Number: ES-VERTEX PHARMACEUTICALS INC-2013-010205

PATIENT
  Sex: 0

DRUGS (3)
  1. INCIVO [Suspect]
     Indication: HEPATITIS C
     Dates: start: 20120418
  2. PEG INTERFERON [Suspect]
     Indication: HEPATITIS C
     Dosage: UNK
  3. RIBAVIRIN [Suspect]
     Indication: HEPATITIS C
     Dosage: UNK

REACTIONS (3)
  - Neutropenia [Unknown]
  - Anaemia [Unknown]
  - Off label use [Unknown]
